FAERS Safety Report 10077080 (Version 2)
Quarter: 2014Q2

REPORT INFORMATION
  Report Type: Spontaneous
  Country: BR (occurrence: BR)
  Receive Date: 20140414
  Receipt Date: 20140414
  Transmission Date: 20141212
  Serious: Yes (Other)
  Sender: FDA-Public Use
  Company Number: PHHY2014BR023190

PATIENT
  Age: 72 Year
  Sex: Female

DRUGS (4)
  1. DIOVAN HCT [Suspect]
     Indication: HYPERTENSION
     Dosage: 1 DF(80/12.5MG), DAILY
     Route: 048
  2. DIOVAN HCT [Suspect]
     Dosage: 2 DF(80/12.5MG), DAILY
  3. INSULIN [Suspect]
     Indication: DIABETES MELLITUS
     Dosage: 10 DF, QD(AT NIGHT)
     Route: 030
  4. GALVUS [Suspect]
     Indication: DIABETES MELLITUS
     Dosage: 1 DF(50MG), DAILY
     Route: 048

REACTIONS (7)
  - Cerebellar tumour [Recovered/Resolved]
  - Blood pressure fluctuation [Recovered/Resolved]
  - Incorrect dose administered [Unknown]
  - Somnolence [Recovering/Resolving]
  - Head discomfort [Recovering/Resolving]
  - Dizziness [Not Recovered/Not Resolved]
  - Diabetes mellitus inadequate control [Recovered/Resolved]
